FAERS Safety Report 18509588 (Version 2)
Quarter: 2020Q4

REPORT INFORMATION
  Report Type: Spontaneous
  Country: US (occurrence: US)
  Receive Date: 20201117
  Receipt Date: 20201119
  Transmission Date: 20210114
  Serious: Yes (Disabling)
  Sender: FDA-Public Use
  Company Number: US-SA-2020SA316320

PATIENT

DRUGS (2)
  1. AUBAGIO [Suspect]
     Active Substance: TERIFLUNOMIDE
     Indication: MULTIPLE SCLEROSIS
  2. AUBAGIO [Suspect]
     Active Substance: TERIFLUNOMIDE
     Indication: PAIN
     Dosage: 14 MG, QD
     Route: 048
     Dates: start: 20190702

REACTIONS (2)
  - Product use in unapproved indication [Unknown]
  - Walking disability [Unknown]

NARRATIVE: CASE EVENT DATE: 20190702
